FAERS Safety Report 16711231 (Version 1)
Quarter: 2019Q3

REPORT INFORMATION
  Report Type: Spontaneous
  Country: CA (occurrence: CA)
  Receive Date: 20190816
  Receipt Date: 20190816
  Transmission Date: 20191004
  Serious: Yes (Hospitalization, Other)
  Sender: FDA-Public Use
  Company Number: CA-BAXTER-2019BAX016202

PATIENT
  Age: 30 Year
  Sex: Female

DRUGS (5)
  1. CALCIUM CARBONATE. [Suspect]
     Active Substance: CALCIUM CARBONATE
     Indication: HYPERCALCAEMIA
     Route: 065
  2. ERGOCALCIFEROL. [Suspect]
     Active Substance: ERGOCALCIFEROL
     Indication: HYPERCALCAEMIA
     Dosage: DOSAGE FORM: NOT SPECIFIED
     Route: 065
  3. 0.9% SODIUM CHLORIDE INJECTION [Suspect]
     Active Substance: SODIUM CHLORIDE
     Indication: HYPERCALCAEMIA
     Dosage: DOSAGE FORM: NOT SPECIFIED
     Route: 042
  4. CALCITONIN [Suspect]
     Active Substance: CALCITONIN
     Indication: HYPERCALCAEMIA
     Dosage: DOSAGE FORM: NOT SPECIFIED
     Route: 065
  5. CHOLECALCIFEROL [Suspect]
     Active Substance: CHOLECALCIFEROL
     Indication: PRODUCT USED FOR UNKNOWN INDICATION
     Dosage: DOSAGE FORM: NOT SPECIFIED
     Route: 065

REACTIONS (10)
  - Nephrocalcinosis [Recovered/Resolved]
  - Live birth [Recovered/Resolved]
  - Diabetes insipidus [Recovered/Resolved]
  - Drug ineffective [Recovered/Resolved]
  - Exposure during pregnancy [Recovered/Resolved]
  - Blood calcium increased [Recovered/Resolved]
  - Renal failure [Recovered/Resolved]
  - Calculus urinary [Recovered/Resolved]
  - Hypercalcaemia [Recovered/Resolved]
  - Blood creatinine increased [Recovered/Resolved]
